FAERS Safety Report 17417756 (Version 1)
Quarter: 2020Q1

REPORT INFORMATION
  Report Type: Spontaneous
  Country: US (occurrence: US)
  Receive Date: 20200130
  Receipt Date: 20200130
  Transmission Date: 20200409
  Serious: Yes (Hospitalization)
  Sender: FDA-Public Use
  Company Number: None

PATIENT
  Age: 69 Year
  Sex: Female
  Weight: 106.9 kg

DRUGS (3)
  1. DARATUMUMAB [Suspect]
     Active Substance: DARATUMUMAB
     Dates: end: 20200120
  2. DEXAMETHASONE. [Suspect]
     Active Substance: DEXAMETHASONE
     Dates: end: 20200120
  3. LENALIDOMIDE (CC-5013) [Suspect]
     Active Substance: LENALIDOMIDE
     Dates: end: 20200122

REACTIONS (9)
  - Decreased appetite [None]
  - Therapy cessation [None]
  - Deep vein thrombosis [None]
  - Neutrophil count decreased [None]
  - Asthenia [None]
  - Escherichia test positive [None]
  - Nitrite urine present [None]
  - Bacterial test positive [None]
  - Malaise [None]

NARRATIVE: CASE EVENT DATE: 20200123
